FAERS Safety Report 23314416 (Version 1)
Quarter: 2023Q4

REPORT INFORMATION
  Report Type: Spontaneous
  Country: ES (occurrence: ES)
  Receive Date: 20231219
  Receipt Date: 20231219
  Transmission Date: 20240110
  Serious: Yes (Other)
  Sender: FDA-Public Use
  Company Number: ES-GUERBET/L. FARMACEUTICOS GUERBET-ES-20230084

PATIENT
  Age: 53 Year
  Sex: Female
  Weight: 53 kg

DRUGS (1)
  1. DOTAREM [Suspect]
     Active Substance: GADOTERATE MEGLUMINE
     Indication: Pituitary scan
     Route: 042
     Dates: start: 20231207, end: 20231207

REACTIONS (2)
  - Erythema [Recovered/Resolved]
  - Swelling face [Recovered/Resolved]

NARRATIVE: CASE EVENT DATE: 20231207
